FAERS Safety Report 15679964 (Version 3)
Quarter: 2019Q3

REPORT INFORMATION
  Report Type: Report from Study
  Country: JP (occurrence: JP)
  Receive Date: 20181203
  Receipt Date: 20190717
  Transmission Date: 20191004
  Serious: Yes (Other)
  Sender: FDA-Public Use
  Company Number: JP-BRISTOL-MYERS SQUIBB COMPANY-BMS-2018-113460

PATIENT
  Age: 62 Year
  Sex: Male

DRUGS (1)
  1. NIVOLUMAB [Suspect]
     Active Substance: NIVOLUMAB
     Indication: LUNG ADENOCARCINOMA
     Dosage: 3 MG/KG, Q2WK
     Route: 041
     Dates: start: 20180111, end: 20180208

REACTIONS (1)
  - Eosinophilic pneumonia acute [Recovering/Resolving]

NARRATIVE: CASE EVENT DATE: 20180222
